FAERS Safety Report 6679446-7 (Version None)
Quarter: 2010Q2

REPORT INFORMATION
  Report Type: 
  Country: None (occurrence: None)
  Receive Date: 20100413
  Receipt Date: 20100402
  Transmission Date: 20101027
  Serious: Yes (Hospitalization)
  Sender: FDA-Public Use
  Company Number: US-ROCHE-696367

PATIENT
  Sex: Female

DRUGS (4)
  1. BEVACIZUMAB [Suspect]
     Dosage: FREQUENCY:30-90 MINUTES ON DAY ONE.
     Route: 042
     Dates: start: 20091123
  2. CARBOPLATIN [Suspect]
     Dosage: AUC=6 FREQ; 30 MIN ON DAY DAY ONE.
     Route: 042
     Dates: start: 20091123
  3. PACLITAXEL [Suspect]
     Dosage: FREQ: OVER 3 HOURS ON DAY ONE.
     Route: 042
     Dates: start: 20091123
  4. ABT-888 [Suspect]
     Dosage: FREQ: BID ON DAYS 1-21.
     Route: 048
     Dates: start: 20091123

REACTIONS (6)
  - ANAEMIA [None]
  - EMBOLISM [None]
  - HYPOALBUMINAEMIA [None]
  - HYPOKALAEMIA [None]
  - PELVIC INFECTION [None]
  - SMALL INTESTINAL PERFORATION [None]
